FAERS Safety Report 8614072-1 (Version None)
Quarter: 2012Q3

REPORT INFORMATION
  Report Type: 
  Country: None (occurrence: None)
  Receive Date: 20120823
  Receipt Date: 20120813
  Transmission Date: 20120928
  Serious: Yes (Hospitalization)
  Sender: FDA-Public Use
  Company Number: US-BAYER-2012-031619

PATIENT
  Age: 18 Year
  Sex: Female
  Weight: 56.689 kg

DRUGS (12)
  1. YASMIN [Suspect]
     Indication: PREMENSTRUAL SYNDROME
  2. ALBUTEROL [Concomitant]
     Dosage: UNK UNK, PRN
     Route: 045
  3. LEXAPRO [Concomitant]
     Indication: ANXIETY
  4. TRAZODONE HYDROCHLORIDE [Concomitant]
     Indication: ANXIETY
  5. YASMIN [Suspect]
     Indication: DYSMENORRHOEA
  6. TRAZODONE HYDROCHLORIDE [Concomitant]
     Indication: DEPRESSION
     Dosage: 25 MG, EVERY HOUR OF SLEEP
     Route: 048
  7. FLOVENT [Concomitant]
     Dosage: 110 MCG
  8. OTHER ANALGESICS AND ANTIPYRETICS [Concomitant]
     Indication: PREMENSTRUAL SYNDROME
     Dosage: TWICE MONTHLY AS NEEDED
  9. LORTAB [Concomitant]
     Indication: CHEST PAIN
  10. LEXAPRO [Concomitant]
     Indication: DEPRESSION
     Dosage: 20 MG, QD
     Route: 048
  11. YASMIN [Suspect]
     Indication: ACNE
     Dosage: UNK
     Dates: start: 20040101, end: 20040701
  12. FLONASE [Concomitant]
     Dosage: UNK UNK, PRN

REACTIONS (3)
  - PULMONARY EMBOLISM [None]
  - DEPRESSION [None]
  - PAIN [None]
